FAERS Safety Report 10369511 (Version 3)
Quarter: 2014Q3

REPORT INFORMATION
  Report Type: Report from Study
  Country: US (occurrence: US)
  Receive Date: 20140807
  Receipt Date: 20140818
  Transmission Date: 20150326
  Serious: Yes (Hospitalization)
  Sender: FDA-Public Use
  Company Number: US-ACTELION-A-US2013-89639

PATIENT
  Age: 85 Year
  Sex: Female
  Weight: 65.76 kg

DRUGS (2)
  1. TRACLEER [Suspect]
     Active Substance: BOSENTAN\BOSENTAN MONOHYDRATE
     Indication: PULMONARY ARTERIAL HYPERTENSION
     Dosage: 125 MG, BID
     Route: 048
     Dates: start: 200912
  2. ADCIRCA [Concomitant]
     Active Substance: TADALAFIL
     Dosage: 40 MG, QD
     Dates: start: 201406

REACTIONS (11)
  - Nasopharyngitis [Unknown]
  - Arthropathy [Unknown]
  - Debridement [Unknown]
  - Cyst [Recovering/Resolving]
  - Incisional drainage [Recovering/Resolving]
  - Weight decreased [Unknown]
  - Upper respiratory tract infection [Unknown]
  - Fatigue [Unknown]
  - Abscess [Unknown]
  - Hypersensitivity [Unknown]
  - Peripheral swelling [Unknown]
